FAERS Safety Report 9838685 (Version 3)
Quarter: 2014Q1

REPORT INFORMATION
  Report Type: Report from Study
  Country: VE (occurrence: VE)
  Receive Date: 20140123
  Receipt Date: 20140130
  Transmission Date: 20141002
  Serious: Yes (Other)
  Sender: FDA-Public Use
  Company Number: VE-ABBVIE-13P-178-1041665-00

PATIENT
  Age: 26 Year
  Sex: Male
  Weight: 95 kg

DRUGS (3)
  1. HUMIRA [Suspect]
     Indication: PSORIASIS
     Route: 058
     Dates: start: 20110510, end: 201111
  2. HUMIRA [Suspect]
     Route: 058
     Dates: start: 201211, end: 201212
  3. METHOTREXATE [Concomitant]
     Indication: PSORIASIS
     Dates: start: 2013, end: 2013

REACTIONS (3)
  - Tuberculin test positive [Recovered/Resolved]
  - Cough [Recovered/Resolved]
  - Influenza [Recovered/Resolved]
